FAERS Safety Report 18254699 (Version 1)
Quarter: 2020Q3

REPORT INFORMATION
  Report Type: Spontaneous
  Country: GB (occurrence: GB)
  Receive Date: 20200910
  Receipt Date: 20200910
  Transmission Date: 20201103
  Serious: Yes (Other)
  Sender: FDA-Public Use
  Company Number: GB-ASCEND THERAPEUTICS US, LLC-2089625

PATIENT
  Age: 50 Year
  Sex: Female
  Weight: 57 kg

DRUGS (5)
  1. ESTROGEL [Suspect]
     Active Substance: ESTRADIOL
  2. OESTRODOSE (ESTRADIOL), UNKNOWN [Suspect]
     Active Substance: ESTRADIOL
     Route: 061
     Dates: start: 20200502, end: 20200707
  3. OESTRODOSE (ESTRADIOL), UNKNOWN [Suspect]
     Active Substance: ESTRADIOL
     Route: 061
     Dates: start: 20200402
  4. ESTROGEL [Suspect]
     Active Substance: ESTRADIOL
     Indication: HORMONE REPLACEMENT THERAPY
     Route: 061
     Dates: start: 20200402
  5. UTROGESTAN (MICRONIZED PROGESTERONE), UNKNOWN [Concomitant]
     Route: 065

REACTIONS (11)
  - Arthralgia [Recovered/Resolved]
  - Fluid retention [Recovered/Resolved]
  - Product substitution issue [Unknown]
  - Breast pain [Recovered/Resolved]
  - Abnormal weight gain [Recovered/Resolved]
  - Product label on wrong product [Unknown]
  - Depressed mood [Recovered/Resolved]
  - Haemorrhage [Recovered/Resolved]
  - Mood swings [Recovered/Resolved]
  - Abdominal distension [Recovered/Resolved]
  - Abdominal pain upper [Recovered/Resolved]

NARRATIVE: CASE EVENT DATE: 20200402
